FAERS Safety Report 7527685-5 (Version None)
Quarter: 2011Q2

REPORT INFORMATION
  Report Type: 
  Country: None (occurrence: None)
  Receive Date: 20110607
  Receipt Date: 20110524
  Transmission Date: 20111010
  Serious: Yes (Hospitalization)
  Sender: FDA-Public Use
  Company Number: PHHY2011FR45486

PATIENT
  Sex: Female

DRUGS (14)
  1. LERCANIDIPINE [Concomitant]
     Dosage: UNK
  2. OXYCODONE HCL [Concomitant]
     Dosage: UNK
  3. COMTAN [Suspect]
     Indication: PARKINSON'S DISEASE
     Dosage: 200 MG, UNK
     Route: 048
     Dates: end: 20110303
  4. HYTACAND [Concomitant]
     Dosage: UNK
  5. ACETAMINOPHEN [Concomitant]
     Dosage: UNK
  6. ZOLOFT [Concomitant]
     Dosage: UNK
  7. TANAKAN [Concomitant]
     Dosage: UNK
  8. SELEGILINE HCL [Suspect]
     Indication: PARKINSON'S DISEASE
     Dosage: 5 MG, UNK
     Route: 048
     Dates: end: 20110301
  9. LORAZEPAM [Concomitant]
     Dosage: UNK
  10. DUPHALAC [Concomitant]
     Dosage: UNK
  11. LOVENOX [Concomitant]
     Dosage: UNK
  12. FENOFIBRATE [Concomitant]
     Dosage: UNK
  13. ACETAMINOPHEN AND TRAMADOL HCL [Concomitant]
     Dosage: UNK
  14. MODOPAR [Suspect]
     Indication: PARKINSON'S DISEASE
     Dosage: 100 / 25 MG  UNK
     Route: 048
     Dates: end: 20110301

REACTIONS (2)
  - FEMUR FRACTURE [None]
  - HYPERKINESIA [None]
